FAERS Safety Report 8922969 (Version 1)
Quarter: 2012Q4

REPORT INFORMATION
  Report Type: 
  Country: US (occurrence: US)
  Receive Date: 20121123
  Receipt Date: 20121123
  Transmission Date: 20130627
  Serious: No
  Sender: FDA-Public Use
  Company Number: US-PFIZER INC-2012292660

PATIENT
  Age: 73 Year
  Sex: Female
  Weight: 104 kg

DRUGS (2)
  1. NEURONTIN [Suspect]
     Indication: HEADACHE
     Dosage: 600 mg, 2x/day
     Dates: start: 2012
  2. LEVOXYL [Concomitant]
     Indication: THYROID DISORDER
     Dosage: 50 ug, daily

REACTIONS (2)
  - Speech disorder [Not Recovered/Not Resolved]
  - Off label use [Unknown]
